FAERS Safety Report 13807886 (Version 5)
Quarter: 2017Q4

REPORT INFORMATION
  Report Type: Spontaneous
  Country: CN (occurrence: CN)
  Receive Date: 20170728
  Receipt Date: 20171027
  Transmission Date: 20180320
  Serious: Yes (Death, Life-Threatening, Hospitalization)
  Sender: FDA-Public Use
  Company Number: CN-ASTRAZENECA-2017SE76740

PATIENT
  Age: 24982 Day
  Sex: Male

DRUGS (23)
  1. INDAPAMIDE. [Concomitant]
     Active Substance: INDAPAMIDE
     Indication: HYPERTENSION
     Route: 048
  2. FAT EMULSION NOS [Concomitant]
     Active Substance: EGG PHOSPHOLIPIDS\SAFFLOWER OIL\SOYBEAN OIL
     Indication: DECREASED APPETITE
     Route: 042
     Dates: start: 20170607, end: 20170719
  3. AMINO ACIDS NOS [Concomitant]
     Active Substance: AMINO ACIDS
     Indication: VOMITING
     Route: 042
     Dates: start: 20170719, end: 20170724
  4. FAT EMULSION NOS [Concomitant]
     Active Substance: EGG PHOSPHOLIPIDS\SAFFLOWER OIL\SOYBEAN OIL
     Indication: VOMITING
     Route: 042
     Dates: start: 20170607, end: 20170719
  5. PROMETHAZINE HYDROCHLORIDE. [Concomitant]
     Active Substance: PROMETHAZINE HYDROCHLORIDE
     Indication: COUGH
     Route: 030
     Dates: start: 20170717, end: 20170717
  6. DURVALUMAB. [Suspect]
     Active Substance: DURVALUMAB
     Indication: NON-SMALL CELL LUNG CANCER
     Route: 042
     Dates: end: 20170725
  7. CARBOPLATIN. [Suspect]
     Active Substance: CARBOPLATIN
     Indication: NON-SMALL CELL LUNG CANCER
     Route: 042
     Dates: start: 20170728, end: 20170728
  8. AMINO ACIDS NOS [Concomitant]
     Active Substance: AMINO ACIDS
     Indication: PROPHYLAXIS
     Route: 042
     Dates: start: 20170607, end: 20170611
  9. AMINO ACIDS NOS [Concomitant]
     Active Substance: AMINO ACIDS
     Indication: PROPHYLAXIS
     Route: 042
     Dates: start: 20170620, end: 20170630
  10. AMINO ACIDS NOS [Concomitant]
     Active Substance: AMINO ACIDS
     Indication: VOMITING
     Route: 042
     Dates: start: 20170620, end: 20170630
  11. AMINO ACIDS NOS [Concomitant]
     Active Substance: AMINO ACIDS
     Indication: PROPHYLAXIS
     Route: 042
     Dates: start: 20170726, end: 20170729
  12. FAT EMULSION NOS [Concomitant]
     Active Substance: EGG PHOSPHOLIPIDS\SAFFLOWER OIL\SOYBEAN OIL
     Indication: VOMITING
     Route: 042
     Dates: start: 20170726, end: 20170726
  13. AMINO ACIDS NOS [Concomitant]
     Active Substance: AMINO ACIDS
     Indication: VOMITING
     Route: 042
     Dates: start: 20170607, end: 20170611
  14. METOCLOPRAMIDE HYDROCHLORIDE. [Concomitant]
     Active Substance: METOCLOPRAMIDE HYDROCHLORIDE
     Indication: PROPHYLAXIS
     Route: 030
     Dates: start: 20170726, end: 20170803
  15. FAT EMULSION NOS [Concomitant]
     Active Substance: EGG PHOSPHOLIPIDS\SAFFLOWER OIL\SOYBEAN OIL
     Indication: DECREASED APPETITE
     Route: 042
     Dates: start: 20170726, end: 20170726
  16. DURVALUMAB. [Suspect]
     Active Substance: DURVALUMAB
     Indication: NON-SMALL CELL LUNG CANCER
     Route: 042
     Dates: start: 20170523, end: 20170523
  17. DURVALUMAB. [Suspect]
     Active Substance: DURVALUMAB
     Indication: NON-SMALL CELL LUNG CANCER
     Route: 042
     Dates: start: 20170719, end: 20170719
  18. PEMETREXED. [Suspect]
     Active Substance: PEMETREXED
     Indication: NON-SMALL CELL LUNG CANCER
     Route: 042
     Dates: start: 20170728, end: 20170728
  19. DURVALUMAB. [Suspect]
     Active Substance: DURVALUMAB
     Indication: NON-SMALL CELL LUNG CANCER
     Route: 042
     Dates: start: 20170620, end: 20170620
  20. CODEINE PHOSPHATE [Concomitant]
     Active Substance: CODEINE PHOSPHATE
     Indication: COUGH
     Dosage: 12 ML
     Route: 048
     Dates: start: 20170619
  21. AMINO ACIDS NOS [Concomitant]
     Active Substance: AMINO ACIDS
     Indication: PROPHYLAXIS
     Route: 042
     Dates: start: 20170719, end: 20170724
  22. AMINO ACIDS NOS [Concomitant]
     Active Substance: AMINO ACIDS
     Indication: VOMITING
     Route: 042
     Dates: start: 20170726, end: 20170729
  23. METOCLOPRAMIDE HYDROCHLORIDE. [Concomitant]
     Active Substance: METOCLOPRAMIDE HYDROCHLORIDE
     Indication: PROPHYLAXIS
     Route: 030
     Dates: start: 20170717, end: 20170718

REACTIONS (3)
  - Cerebral infarction [Not Recovered/Not Resolved]
  - Thrombocytopenia [Recovering/Resolving]
  - Vomiting [Recovered/Resolved]

NARRATIVE: CASE EVENT DATE: 20170720
